FAERS Safety Report 16145649 (Version 1)
Quarter: 2019Q2

REPORT INFORMATION
  Report Type: Spontaneous
  Country: US (occurrence: US)
  Receive Date: 20190227
  Receipt Date: 20190227
  Transmission Date: 20190711
  Serious: No
  Sender: FDA-Public Use
  Company Number: None

PATIENT
  Age: 74 Year
  Sex: Female

DRUGS (1)
  1. SILDENAFIL TAB 20MG [Suspect]
     Active Substance: SILDENAFIL
     Route: 048
     Dates: start: 201901, end: 20190226

REACTIONS (3)
  - Eye contusion [None]
  - Epistaxis [None]
  - Insomnia [None]

NARRATIVE: CASE EVENT DATE: 20190227
